FAERS Safety Report 4840443-5 (Version None)
Quarter: 2005Q4

REPORT INFORMATION
  Report Type: 
  Country: None (occurrence: None)
  Receive Date: 20051128
  Receipt Date: 20051128
  Transmission Date: 20060501
  Serious: Yes (Other)
  Sender: FDA-Public Use
  Company Number: None

PATIENT
  Age: 11 Year
  Sex: Male
  Weight: 49.4421 kg

DRUGS (1)
  1. CREST PRO HEALTH RINSE CREST [Suspect]
     Indication: ORTHODONTIC APPLIANCE USER
     Dosage: 3TSPS.   2X  A DAY  DENTAL
     Route: 004
     Dates: start: 20051107, end: 20051126

REACTIONS (3)
  - COUGH [None]
  - NASAL CONGESTION [None]
  - NASOPHARYNGITIS [None]
